FAERS Safety Report 14008720 (Version 10)
Quarter: 2018Q4

REPORT INFORMATION
  Report Type: Report from Study
  Country: US (occurrence: US)
  Receive Date: 20170925
  Receipt Date: 20181030
  Transmission Date: 20190204
  Serious: Yes (Life-Threatening, Other)
  Sender: FDA-Public Use
  Company Number: US-TESARO, INC-US-2017TSO02600

PATIENT
  Age: 70 Year
  Sex: Female
  Weight: 49.57 kg

DRUGS (16)
  1. MULTIVITAMIN [Concomitant]
     Active Substance: VITAMINS
     Indication: PRODUCT USED FOR UNKNOWN INDICATION
     Dosage: 1 DF, QD
     Route: 048
  2. AMLODIPINE [Concomitant]
     Active Substance: AMLODIPINE BESYLATE
     Indication: PRODUCT USED FOR UNKNOWN INDICATION
     Dosage: 5 MG, QD
     Route: 048
  3. ZEJULA [Suspect]
     Active Substance: NIRAPARIB
     Dosage: 100 MG, QPM
     Route: 048
     Dates: start: 20171121
  4. AMLODIPINE BESILATE W/ATORVASTATIN [Concomitant]
     Active Substance: AMLODIPINE BESYLATE\ATORVASTATIN
     Indication: PRODUCT USED FOR UNKNOWN INDICATION
     Dosage: 10 MG-10 MG, 3/WEEK
     Route: 048
  5. KEPPRA [Concomitant]
     Active Substance: LEVETIRACETAM
     Indication: PRODUCT USED FOR UNKNOWN INDICATION
     Dosage: 500 MG, BID
     Route: 048
  6. ZEJULA [Suspect]
     Active Substance: NIRAPARIB
     Dosage: 100 MG, QD
     Route: 048
     Dates: start: 20170926, end: 2017
  7. ZEJULA [Suspect]
     Active Substance: NIRAPARIB
     Dosage: 100 MG, QD
     Route: 048
     Dates: start: 20171121
  8. CRANBERRY. [Concomitant]
     Active Substance: CRANBERRY
     Indication: PRODUCT USED FOR UNKNOWN INDICATION
     Dosage: UNK
     Route: 048
  9. VITAMIN B12 [Concomitant]
     Active Substance: CYANOCOBALAMIN
     Indication: PRODUCT USED FOR UNKNOWN INDICATION
     Dosage: 1000 ?G, UNK
     Route: 048
  10. BIOTIN [Concomitant]
     Active Substance: BIOTIN
     Indication: PRODUCT USED FOR UNKNOWN INDICATION
     Dosage: 5000 MCG, QD
     Route: 048
  11. ZEJULA [Suspect]
     Active Substance: NIRAPARIB
     Indication: OVARIAN CANCER
     Dosage: 300 MG, QD
     Route: 048
     Dates: start: 20170814, end: 20170825
  12. AMBIEN [Concomitant]
     Active Substance: ZOLPIDEM TARTRATE
     Indication: PRODUCT USED FOR UNKNOWN INDICATION
     Dosage: 5 MG, QD
     Route: 048
  13. PEPCID [Concomitant]
     Active Substance: FAMOTIDINE
     Indication: PRODUCT USED FOR UNKNOWN INDICATION
     Dosage: 20 MG, BID
     Route: 048
  14. ZEJULA [Suspect]
     Active Substance: NIRAPARIB
     Dosage: 200 MG, QD
     Route: 048
     Dates: start: 20171027, end: 20171106
  15. CALCIUM 600 + D [Concomitant]
     Active Substance: CALCIUM\VITAMIN D
     Indication: PRODUCT USED FOR UNKNOWN INDICATION
     Dosage: 1 DF, BID
     Route: 048
  16. METOPROLOL. [Concomitant]
     Active Substance: METOPROLOL
     Indication: PRODUCT USED FOR UNKNOWN INDICATION
     Dosage: 25 MG, BID
     Route: 048

REACTIONS (29)
  - Hyperlipidaemia [Not Recovered/Not Resolved]
  - Syncope [Not Recovered/Not Resolved]
  - Asthenia [Recovered/Resolved]
  - Osteoporosis [Unknown]
  - Benign tumour excision [Unknown]
  - Blood count abnormal [Unknown]
  - Adverse drug reaction [Not Recovered/Not Resolved]
  - Cataract [Not Recovered/Not Resolved]
  - Metastases to central nervous system [Not Recovered/Not Resolved]
  - Emotional distress [Unknown]
  - Carbohydrate antigen 125 increased [Recovering/Resolving]
  - Neutrophil count decreased [Recovered/Resolved]
  - Dizziness [Recovered/Resolved]
  - Red blood cell count decreased [Unknown]
  - Weight decreased [Recovering/Resolving]
  - Thrombocytopenia [Recovered/Resolved]
  - Hypotension [Recovered/Resolved]
  - Blood pressure diastolic decreased [Recovered/Resolved]
  - Hypertension [Recovered/Resolved]
  - White blood cell count decreased [Unknown]
  - Fatigue [Recovered/Resolved]
  - Bradycardia [Recovered/Resolved]
  - Anxiety [Not Recovered/Not Resolved]
  - Nausea [Recovered/Resolved]
  - Gait disturbance [Not Recovered/Not Resolved]
  - Neuropathy peripheral [Unknown]
  - Headache [Recovered/Resolved]
  - Anaemia [Not Recovered/Not Resolved]
  - Constipation [Not Recovered/Not Resolved]

NARRATIVE: CASE EVENT DATE: 201708
